FAERS Safety Report 16666234 (Version 1)
Quarter: 2019Q3

REPORT INFORMATION
  Report Type: Spontaneous
  Country: US (occurrence: US)
  Receive Date: 20190805
  Receipt Date: 20190805
  Transmission Date: 20191004
  Serious: Yes (Other)
  Sender: FDA-Public Use
  Company Number: US-ACCORD-093759

PATIENT
  Age: 58 Year
  Sex: Female

DRUGS (14)
  1. FELODIPINE. [Concomitant]
     Active Substance: FELODIPINE
     Dates: start: 20101006
  2. ZOFRAN [Concomitant]
     Active Substance: ONDANSETRON HYDROCHLORIDE
     Dosage: EVERY SIX HOURS AS REQUIRED
  3. IBUPROFEN. [Concomitant]
     Active Substance: IBUPROFEN
     Route: 048
     Dates: start: 20100907
  4. CALCIUM CARBONATE/ERGOCALCIFEROL [Concomitant]
     Dosage: 600MG-400IU
     Route: 048
     Dates: start: 20100809
  5. SIMVASTATIN. [Concomitant]
     Active Substance: SIMVASTATIN
     Route: 048
     Dates: start: 20101006
  6. PHENERGAN [Concomitant]
     Active Substance: PROMETHAZINE HYDROCHLORIDE
     Dosage: EVERY SIX HOURS AS REQUIRED
     Dates: end: 2018
  7. DOCETAXEL ACCORD [Suspect]
     Active Substance: DOCETAXEL
     Indication: BREAST CANCER
     Dosage: DOSAGE: 10 MG/ML?NUMBER OF CYCLES: 04
     Dates: start: 20111104, end: 20120106
  8. NAPROXEN. [Concomitant]
     Active Substance: NAPROXEN
     Route: 048
     Dates: start: 20100721
  9. LEVOTHYROXINE/LEVOTHYROXINE SODIUM [Concomitant]
  10. IRON [Concomitant]
     Active Substance: IRON
     Dosage: 325MF
  11. PYRIDOXINE [Concomitant]
     Active Substance: PYRIDOXINE
  12. TRASTUZUMAB. [Concomitant]
     Active Substance: TRASTUZUMAB
     Dosage: INJ 21 MG ING IV OVER 30MIN
     Route: 042
  13. ANASTROZOLE. [Concomitant]
     Active Substance: ANASTROZOLE
  14. PARACETAMOL [Concomitant]
     Active Substance: ACETAMINOPHEN
     Dosage: TWO TABS BY MOUTH EVERY DAY PRN

REACTIONS (1)
  - Alopecia [Not Recovered/Not Resolved]

NARRATIVE: CASE EVENT DATE: 20111104
